FAERS Safety Report 24812439 (Version 2)
Quarter: 2025Q3

REPORT INFORMATION
  Report Type: Report from Study
  Country: US (occurrence: US)
  Receive Date: 20250106
  Receipt Date: 20250809
  Transmission Date: 20251020
  Serious: Yes (Other)
  Sender: ALEXION PHARMACEUTICALS
  Company Number: US-ASTRAZENECA-202501USA001251US

PATIENT
  Sex: Female

DRUGS (1)
  1. STRENSIQ [Suspect]
     Active Substance: ASFOTASE ALFA
     Route: 065

REACTIONS (7)
  - Seizure [Unknown]
  - Renal impairment [Unknown]
  - Pain [Unknown]
  - Pain in extremity [Unknown]
  - Tooth abscess [Unknown]
  - Fatigue [Unknown]
  - Weight increased [Unknown]
